FAERS Safety Report 9335093 (Version 1)
Quarter: 2013Q2

REPORT INFORMATION
  Report Type: Spontaneous
  Country: US (occurrence: US)
  Receive Date: 20130606
  Receipt Date: 20130606
  Transmission Date: 20140414
  Serious: No
  Sender: FDA-Public Use
  Company Number: US-ASTRAZENECA-2013SE38025

PATIENT
  Age: 64 Year
  Sex: Female
  Weight: 80.7 kg

DRUGS (4)
  1. SYMBICORT [Suspect]
     Indication: ASTHMA
     Dosage: 80/4.5, UNKNOWN
     Route: 055
  2. SYMBICORT [Suspect]
     Indication: ASTHMA
     Dosage: TWO INHALATIONS ONES DAILY
     Route: 055
  3. SYMBICORT [Suspect]
     Indication: ASTHMA
     Dosage: 2 PUFFS TWO TIMES A DAY
     Route: 055
     Dates: start: 2013, end: 20130517
  4. AVALIDE [Concomitant]

REACTIONS (4)
  - Wheezing [Not Recovered/Not Resolved]
  - Fatigue [Not Recovered/Not Resolved]
  - Muscle spasms [Not Recovered/Not Resolved]
  - Intentional drug misuse [Unknown]
